FAERS Safety Report 5250855-6 (Version None)
Quarter: 2007Q1

REPORT INFORMATION
  Report Type: 
  Country: None (occurrence: None)
  Receive Date: 20070228
  Receipt Date: 20060719
  Transmission Date: 20070707
  Serious: No
  Sender: FDA-Public Use
  Company Number: US-GLAXOSMITHKLINE-A0612811A

PATIENT
  Age: 31 Year
  Sex: Female

DRUGS (4)
  1. LAMICTAL [Suspect]
     Indication: BIPOLAR DISORDER
     Route: 048
     Dates: start: 20050101
  2. NEURONTIN [Concomitant]
  3. INDERAL [Concomitant]
  4. RISPERDAL [Concomitant]

REACTIONS (3)
  - BLOOD TESTOSTERONE INCREASED [None]
  - HIRSUTISM [None]
  - HYPERHIDROSIS [None]
